FAERS Safety Report 7231681-5 (Version None)
Quarter: 2011Q1

REPORT INFORMATION
  Report Type: 
  Country: None (occurrence: None)
  Receive Date: 20110118
  Receipt Date: 20110104
  Transmission Date: 20110831
  Serious: No
  Sender: FDA-Public Use
  Company Number: US-B.I. PHARMACEUTICALS,INC./RIDGEFIELD-2011-BP-00576BP

PATIENT
  Sex: Female

DRUGS (5)
  1. VERAPAMIL [Concomitant]
     Indication: CARDIAC DISORDER
     Dosage: 180 MG
     Route: 048
  2. PLAVIX [Concomitant]
     Indication: CARDIAC DISORDER
     Dosage: 75 MG
     Route: 048
  3. PRILOSEC [Concomitant]
     Indication: GASTROOESOPHAGEAL REFLUX DISEASE
     Dosage: 220.6 MG
     Route: 048
  4. PRADAXA [Suspect]
     Indication: CARDIAC MURMUR
     Dosage: 300 MG
     Route: 048
     Dates: start: 20101210
  5. FEMURA [Concomitant]
     Indication: BREAST CANCER
     Dosage: 2.5 MG
     Route: 048

REACTIONS (3)
  - HAEMORRHOIDS [None]
  - CONSTIPATION [None]
  - RECTAL HAEMORRHAGE [None]
